FAERS Safety Report 21411422 (Version 1)
Quarter: 2022Q4

REPORT INFORMATION
  Report Type: Spontaneous
  Country: US (occurrence: None)
  Receive Date: 20221005
  Receipt Date: 20221005
  Transmission Date: 20230112
  Serious: No
  Sender: FDA-Public Use
  Company Number: None

PATIENT
  Age: 63 Year
  Sex: Male
  Weight: 84.6 kg

DRUGS (1)
  1. BEBTELOVIMAB [Suspect]
     Active Substance: BEBTELOVIMAB
     Indication: COVID-19
     Dates: start: 20221004, end: 20221004

REACTIONS (4)
  - Fatigue [None]
  - Dizziness [None]
  - Headache [None]
  - Condition aggravated [None]

NARRATIVE: CASE EVENT DATE: 20221005
